FAERS Safety Report 15653185 (Version 1)
Quarter: 2018Q4

REPORT INFORMATION
  Report Type: Spontaneous
  Country: US (occurrence: US)
  Receive Date: 20181123
  Receipt Date: 20181123
  Transmission Date: 20190205
  Serious: Yes (Hospitalization)
  Sender: FDA-Public Use
  Company Number: US-NOVOPROD-622368

PATIENT
  Age: 72 Year
  Sex: Male

DRUGS (1)
  1. NOVOLOG [Suspect]
     Active Substance: INSULIN ASPART
     Indication: TYPE 1 DIABETES MELLITUS
     Dosage: UNK
     Route: 058

REACTIONS (3)
  - Blood glucose increased [Recovering/Resolving]
  - Drug ineffective [Recovering/Resolving]
  - Product quality issue [Recovering/Resolving]

NARRATIVE: CASE EVENT DATE: 20180913
